FAERS Safety Report 7934930-0 (Version None)
Quarter: 2011Q4

REPORT INFORMATION
  Report Type: 
  Country: None (occurrence: None)
  Receive Date: 20111122
  Receipt Date: 20111115
  Transmission Date: 20120403
  Serious: Yes (Hospitalization)
  Sender: FDA-Public Use
  Company Number: FR-BAYER-2011-015574

PATIENT
  Age: 82 Year
  Sex: Female

DRUGS (3)
  1. PREDNISOLONE [Concomitant]
     Indication: BRONCHIAL DISORDER
     Dosage: UNK
     Dates: start: 20110214
  2. CARBOCISTEINE [Concomitant]
     Indication: ASTHMA
  3. MOXIFLOXACIN HCL [Suspect]
     Indication: BRONCHIAL DISORDER
     Dosage: 1 DF, QD
     Route: 048
     Dates: start: 20110214, end: 20110214

REACTIONS (6)
  - ACUTE RESPIRATORY FAILURE [None]
  - URTICARIA [None]
  - HYPOTENSION [None]
  - PULMONARY OEDEMA [None]
  - DYSPNOEA [None]
  - HYPERSENSITIVITY [None]
